FAERS Safety Report 8869865 (Version 1)
Quarter: 2012Q4

REPORT INFORMATION
  Report Type: 
  Country: US (occurrence: US)
  Receive Date: 20121026
  Receipt Date: 20121026
  Transmission Date: 20130627
  Serious: No
  Sender: FDA-Public Use
  Company Number: US-AMGEN-USASP2012045899

PATIENT
  Age: 51 Year
  Sex: Female

DRUGS (9)
  1. ENBREL [Suspect]
     Indication: PRODUCT USED FOR UNKNOWN INDICATION
     Dosage: 50 mg, qwk
     Route: 058
     Dates: start: 201104
  2. METHOTREXATE [Concomitant]
     Dosage: UNK
  3. FUROSEMIDE [Concomitant]
     Dosage: 40 mg, UNK
  4. DIOVAN [Concomitant]
     Dosage: 40 mg, UNK
  5. IBUPROFEN [Concomitant]
     Dosage: 200 mg, UNK
  6. FOLIC ACID [Concomitant]
     Dosage: 1 mg, UNK
  7. ESTRADIOL [Concomitant]
     Dosage: 0.025 mg, UNK
  8. MULTIVITAMIN                       /00097801/ [Concomitant]
     Dosage: UNK
  9. VITAMIN C                          /00008001/ [Concomitant]
     Dosage: 500 mg CR

REACTIONS (2)
  - Alopecia [Unknown]
  - Drug effect incomplete [Unknown]
